FAERS Safety Report 19749982 (Version 1)
Quarter: 2021Q3

REPORT INFORMATION
  Report Type: Spontaneous
  Country: US (occurrence: US)
  Receive Date: 20210826
  Receipt Date: 20210826
  Transmission Date: 20211014
  Serious: Yes (Other)
  Sender: FDA-Public Use
  Company Number: None

PATIENT
  Age: 45 Year
  Sex: Male
  Weight: 84 kg

DRUGS (2)
  1. CEFTRIAXONE. [Concomitant]
     Active Substance: CEFTRIAXONE
     Dates: start: 20210820, end: 20210825
  2. IVERMECTIN. [Suspect]
     Active Substance: IVERMECTIN
     Dates: start: 20210821, end: 20210824

REACTIONS (4)
  - Oxygen saturation decreased [None]
  - Seizure [None]
  - Pulseless electrical activity [None]
  - Hypoxia [None]

NARRATIVE: CASE EVENT DATE: 20210824
